FAERS Safety Report 16464367 (Version 1)
Quarter: 2019Q3

REPORT INFORMATION
  Report Type: Spontaneous
  Country: US (occurrence: US)
  Receive Date: 20190620
  Receipt Date: 20190620
  Transmission Date: 20191004
  Serious: Yes (Life-Threatening, Hospitalization)
  Sender: FDA-Public Use
  Company Number: None

PATIENT
  Age: 25 Year
  Sex: Male
  Weight: 112.5 kg

DRUGS (2)
  1. ADZENYS XR-ODT [Suspect]
     Active Substance: AMPHETAMINE
     Indication: ATTENTION DEFICIT/HYPERACTIVITY DISORDER
     Route: 048
     Dates: start: 20190403, end: 20190618
  2. EVEKEO [Suspect]
     Active Substance: AMPHETAMINE SULFATE
     Indication: ATTENTION DEFICIT/HYPERACTIVITY DISORDER
     Route: 048
     Dates: start: 20190403, end: 20190618

REACTIONS (2)
  - Ventricular fibrillation [None]
  - Chest pain [None]

NARRATIVE: CASE EVENT DATE: 20190618
